FAERS Safety Report 6288142-X (Version None)
Quarter: 2009Q3

REPORT INFORMATION
  Report Type: 
  Country: None (occurrence: None)
  Receive Date: 20090729
  Receipt Date: 20090320
  Transmission Date: 20100115
  Serious: No
  Sender: FDA-Public Use
  Company Number: A0774588A

PATIENT
  Age: 2 Month
  Sex: Female

DRUGS (2)
  1. ZANTAC [Suspect]
     Dosage: .03MG THREE TIMES PER DAY
     Route: 048
     Dates: start: 20090306
  2. NO CONCURRENT MEDICATION [Concomitant]

REACTIONS (5)
  - ACCIDENTAL OVERDOSE [None]
  - CONSTIPATION [None]
  - IRRITABILITY [None]
  - RASH [None]
  - VOMITING [None]
